FAERS Safety Report 11561353 (Version 2)
Quarter: 2015Q4

REPORT INFORMATION
  Report Type: Report from Study
  Country: US (occurrence: US)
  Receive Date: 20150928
  Receipt Date: 20151005
  Transmission Date: 20160304
  Serious: Yes (Hospitalization, Other)
  Sender: FDA-Public Use
  Company Number: GXBR2015US002152

PATIENT
  Age: 57 Year
  Sex: Male
  Weight: 199.55 kg

DRUGS (1)
  1. OMNITROPE [Suspect]
     Active Substance: SOMATROPIN
     Indication: GROWTH HORMONE DEFICIENCY
     Dosage: 0.4 MG, QD
     Route: 065

REACTIONS (9)
  - Hepatic failure [Recovering/Resolving]
  - Pneumonia [Recovered/Resolved]
  - Diarrhoea [Not Recovered/Not Resolved]
  - Renal pain [Recovering/Resolving]
  - Malnutrition [Recovered/Resolved]
  - Renal failure [Recovering/Resolving]
  - Influenza [Recovered/Resolved]
  - Herpes zoster [Recovered/Resolved]
  - Vomiting [Not Recovered/Not Resolved]

NARRATIVE: CASE EVENT DATE: 201509
